FAERS Safety Report 22854422 (Version 2)
Quarter: 2023Q4

REPORT INFORMATION
  Report Type: Spontaneous
  Country: US (occurrence: US)
  Receive Date: 20230823
  Receipt Date: 20231017
  Transmission Date: 20240109
  Serious: No
  Sender: FDA-Public Use
  Company Number: US-ALXN-A202216364

PATIENT
  Sex: Female

DRUGS (6)
  1. ULTOMIRIS [Suspect]
     Active Substance: RAVULIZUMAB-CWVZ
     Indication: Paroxysmal nocturnal haemoglobinuria
     Dosage: UNK
     Route: 065
     Dates: start: 202211
  2. SOLIRIS [Suspect]
     Active Substance: ECULIZUMAB
     Indication: Paroxysmal nocturnal haemoglobinuria
     Dosage: 1200 MG, Q2W
     Route: 065
     Dates: start: 20230503
  3. SOLIRIS [Suspect]
     Active Substance: ECULIZUMAB
     Dosage: 900 MG, Q2W
     Route: 065
     Dates: start: 20230814
  4. BENADRYL [Concomitant]
     Active Substance: DIPHENHYDRAMINE HYDROCHLORIDE
     Indication: Hypersensitivity
     Dosage: UNK
     Route: 065
  5. SALINE                             /00075401/ [Concomitant]
     Indication: Hypersensitivity
     Dosage: UNK
     Route: 065
  6. SOLU-MEDROL [Concomitant]
     Active Substance: METHYLPREDNISOLONE SODIUM SUCCINATE
     Indication: Hypersensitivity
     Dosage: UNK
     Route: 065

REACTIONS (4)
  - Lip pruritus [Unknown]
  - Flushing [Unknown]
  - Off label use [Unknown]
  - Urticaria [Unknown]
